FAERS Safety Report 11778662 (Version 1)
Quarter: 2015Q4

REPORT INFORMATION
  Report Type: Spontaneous
  Country: GB (occurrence: GB)
  Receive Date: 20151125
  Receipt Date: 20151125
  Transmission Date: 20160304
  Serious: Yes (Hospitalization)
  Sender: FDA-Public Use
  Company Number: GB-TEVA-609939ACC

PATIENT
  Age: 57 Year
  Sex: Male

DRUGS (12)
  1. SIMVASTATIN. [Suspect]
     Active Substance: SIMVASTATIN
     Dosage: 20 MILLIGRAM DAILY; AT NIGHT; DAILY DOSE: 20MILLIGRAM
     Route: 048
  2. AQUEOUS CREAM [Concomitant]
     Route: 061
  3. SULFASALAZINE. [Suspect]
     Active Substance: SULFASALAZINE
     Dosage: 1.5 MILLIGRAM DAILY; AT NIGHT; DAILY DOSE: 1.5MILLIGRAM
     Route: 048
     Dates: end: 20151030
  4. FOLIC ACID. [Concomitant]
     Active Substance: FOLIC ACID
     Dosage: 5 MILLIGRAM DAILY; EVERY MORNING; DAILY DOSE: 5MILLIGRAM
  5. ADCAL-D3 [Concomitant]
     Active Substance: CALCIUM CARBONATE\CHOLECALCIFEROL
     Dosage: 1500 MILLIGRAM DAILY;
     Route: 048
  6. CODEINE [Concomitant]
     Active Substance: CODEINE
     Dosage: 4 TIMES A DAY AS NEEDED
     Route: 048
  7. PROPRANOLOL [Concomitant]
     Active Substance: PROPRANOLOL\PROPRANOLOL HYDROCHLORIDE
     Dosage: 160 MILLIGRAM DAILY; EVERY MORNING; DAILY DOSE: 160MILLIGRAM
     Route: 048
  8. PARACETAMOL [Concomitant]
     Active Substance: ACETAMINOPHEN
     Dosage: FOUR TIMES A DAY.
     Route: 048
  9. AMLODIPINE [Suspect]
     Active Substance: AMLODIPINE BESYLATE
     Dosage: 10 MILLIGRAM DAILY; EVERY MORNING; DAILY DOSE: 10MILLIGRAM
     Route: 048
     Dates: start: 20150401, end: 20151030
  10. BENDROFLUMETHIAZIDE [Suspect]
     Active Substance: BENDROFLUMETHIAZIDE
     Dosage: 2.5 MILLIGRAM DAILY; EVERY MORNING; DAILY DOSE: 2.5MILLIGRAM
     Route: 048
     Dates: end: 20151030
  11. CHLORPHENAMINE [Concomitant]
     Active Substance: CHLORPHENIRAMINE MALEATE
     Dosage: 12 MILLIGRAM DAILY;
     Route: 048
  12. OMEPRAZOLE. [Concomitant]
     Active Substance: OMEPRAZOLE
     Dosage: 40 MILLIGRAM DAILY; EVERY NIGHT; DAILY DOSE: 40MILLIGRAM

REACTIONS (2)
  - Dermatitis exfoliative [Not Recovered/Not Resolved]
  - Blood pressure decreased [Not Recovered/Not Resolved]

NARRATIVE: CASE EVENT DATE: 20150928
